FAERS Safety Report 8820186 (Version 1)
Quarter: 2012Q4

REPORT INFORMATION
  Report Type: 
  Country: US (occurrence: US)
  Receive Date: 20121002
  Receipt Date: 20121002
  Transmission Date: 20130627
  Serious: No
  Sender: FDA-Public Use
  Company Number: US-009507513-1209USA010516

PATIENT
  Age: 53 Year
  Sex: Female

DRUGS (3)
  1. SINGULAIR [Suspect]
     Indication: ASTHMA
     Dosage: UNK
     Route: 048
     Dates: start: 20120920
  2. ADVAIR [Concomitant]
  3. NASONEX [Concomitant]
     Route: 045

REACTIONS (1)
  - Urticaria [Not Recovered/Not Resolved]
